FAERS Safety Report 16976294 (Version 2)
Quarter: 2020Q1

REPORT INFORMATION
  Report Type: Spontaneous
  Country: JP (occurrence: JP)
  Receive Date: 20191030
  Receipt Date: 20200117
  Transmission Date: 20200409
  Serious: Yes (Hospitalization)
  Sender: FDA-Public Use
  Company Number: JP-BAYER-2019-192315

PATIENT
  Age: 44 Year
  Sex: Male

DRUGS (6)
  1. AVELOX [Suspect]
     Active Substance: MOXIFLOXACIN HYDROCHLORIDE
     Indication: OROPHARYNGEAL PAIN
  2. DICLOFENAC SODIUM. [Suspect]
     Active Substance: DICLOFENAC SODIUM
     Indication: OROPHARYNGEAL PAIN
  3. REBAMIPIDE [Suspect]
     Active Substance: REBAMIPIDE
     Indication: OROPHARYNGEAL PAIN
  4. DICLOFENAC SODIUM. [Suspect]
     Active Substance: DICLOFENAC SODIUM
     Indication: PYREXIA
  5. AVELOX [Suspect]
     Active Substance: MOXIFLOXACIN HYDROCHLORIDE
     Indication: PYREXIA
  6. REBAMIPIDE [Suspect]
     Active Substance: REBAMIPIDE
     Indication: PYREXIA

REACTIONS (2)
  - Nephropathy toxic [Recovering/Resolving]
  - Rhabdomyolysis [Recovering/Resolving]
